FAERS Safety Report 23947520 (Version 1)
Quarter: 2024Q2

REPORT INFORMATION
  Report Type: Spontaneous
  Country: CA (occurrence: CA)
  Receive Date: 20240606
  Receipt Date: 20240606
  Transmission Date: 20240715
  Serious: Yes (Hospitalization, Other)
  Sender: FDA-Public Use
  Company Number: CA-ANIPHARMA-2024-CA-002795

PATIENT
  Age: 43 Year
  Sex: 0
  Weight: 63 kg

DRUGS (6)
  1. CANDESARTAN [Suspect]
     Active Substance: CANDESARTAN
     Indication: Hypertension
     Route: 048
  2. CITALOPRAM HYDROBROMIDE [Concomitant]
     Active Substance: CITALOPRAM HYDROBROMIDE
  3. GLICLAZIDE [Concomitant]
     Active Substance: GLICLAZIDE
  4. JARDIANCE [Concomitant]
     Active Substance: EMPAGLIFLOZIN
  5. METFORMIN [Concomitant]
     Active Substance: METFORMIN HYDROCHLORIDE
  6. MIRTAZAPINE [Concomitant]
     Active Substance: MIRTAZAPINE

REACTIONS (31)
  - Affective disorder [Not Recovered/Not Resolved]
  - Drug ineffective [Not Recovered/Not Resolved]
  - Eating disorder [Not Recovered/Not Resolved]
  - Fatigue [Not Recovered/Not Resolved]
  - Frustration tolerance decreased [Not Recovered/Not Resolved]
  - Headache [Not Recovered/Not Resolved]
  - Injection site haemorrhage [Not Recovered/Not Resolved]
  - Injection site pain [Not Recovered/Not Resolved]
  - Insulin-like growth factor increased [Not Recovered/Not Resolved]
  - Loss of personal independence in daily activities [Not Recovered/Not Resolved]
  - Malaise [Not Recovered/Not Resolved]
  - Amnesia [Not Recovered/Not Resolved]
  - Mental disorder [Not Recovered/Not Resolved]
  - Nasopharyngitis [Not Recovered/Not Resolved]
  - Neck pain [Not Recovered/Not Resolved]
  - Rash [Not Recovered/Not Resolved]
  - Renal impairment [Not Recovered/Not Resolved]
  - Suicidal ideation [Not Recovered/Not Resolved]
  - Treatment noncompliance [Not Recovered/Not Resolved]
  - Urticaria [Not Recovered/Not Resolved]
  - Weight increased [Not Recovered/Not Resolved]
  - Product dose omission issue [Not Recovered/Not Resolved]
  - Asthenia [Not Recovered/Not Resolved]
  - Off label use [Not Recovered/Not Resolved]
  - Intentional dose omission [Not Recovered/Not Resolved]
  - Blood glucose abnormal [Not Recovered/Not Resolved]
  - Blood growth hormone increased [Not Recovered/Not Resolved]
  - Central obesity [Not Recovered/Not Resolved]
  - Cough [Not Recovered/Not Resolved]
  - Depression [Not Recovered/Not Resolved]
  - Diabetes mellitus [Not Recovered/Not Resolved]
